FAERS Safety Report 13106385 (Version 4)
Quarter: 2017Q1

REPORT INFORMATION
  Report Type: Spontaneous
  Country: CO (occurrence: CO)
  Receive Date: 20170111
  Receipt Date: 20170324
  Transmission Date: 20170428
  Serious: Yes (Hospitalization)
  Sender: FDA-Public Use
  Company Number: CO-BIOMARINAP-CO-2017-112340

PATIENT
  Age: 8 Year
  Sex: Female

DRUGS (5)
  1. ACETAMINOPHEN. [Concomitant]
     Active Substance: ACETAMINOPHEN
     Indication: PREMEDICATION
     Dosage: UNK
     Dates: start: 20161229
  2. VIMIZIM [Suspect]
     Active Substance: ELOSULFASE ALFA
     Indication: MUCOPOLYSACCHARIDOSIS IV
     Dosage: 2 MG/KG, UNK
     Route: 042
     Dates: start: 20140722
  3. DORNASE ALFA [Concomitant]
     Active Substance: DORNASE ALFA
     Indication: PRODUCT USED FOR UNKNOWN INDICATION
  4. LORATADINE. [Concomitant]
     Active Substance: LORATADINE
     Indication: PREMEDICATION
     Dosage: UNK
     Dates: start: 20161229
  5. LIPASE [Concomitant]
     Active Substance: LIPASE
     Indication: PRODUCT USED FOR UNKNOWN INDICATION

REACTIONS (13)
  - Pseudomonas infection [Recovering/Resolving]
  - Decreased appetite [Recovering/Resolving]
  - Phlebitis [Unknown]
  - Catheter site pain [Unknown]
  - Oxygen saturation decreased [Recovering/Resolving]
  - Pallor [Unknown]
  - Abdominal distension [Recovering/Resolving]
  - Nausea [Unknown]
  - Abdominal pain [Unknown]
  - Vomiting [Recovering/Resolving]
  - Staphylococcal infection [Unknown]
  - Chest pain [Recovering/Resolving]
  - Pyrexia [Unknown]

NARRATIVE: CASE EVENT DATE: 20161229
